FAERS Safety Report 5414691-X (Version None)
Quarter: 2007Q3

REPORT INFORMATION
  Report Type: 
  Country: None (occurrence: None)
  Receive Date: 20070813
  Receipt Date: 20070801
  Transmission Date: 20080115
  Serious: Yes (Hospitalization, Other)
  Sender: FDA-Public Use
  Company Number: 2007BI016419

PATIENT
  Age: 58 Year
  Sex: Female

DRUGS (1)
  1. NATALIZUMAB [Suspect]
     Indication: MULTIPLE SCLEROSIS
     Dosage: 300 MG;QM;IV
     Route: 042
     Dates: start: 20070509, end: 20070801

REACTIONS (9)
  - CHEST PAIN [None]
  - COLD SWEAT [None]
  - HYPERHIDROSIS [None]
  - INFUSION RELATED REACTION [None]
  - RASH [None]
  - REFUSAL OF TREATMENT BY PATIENT [None]
  - SHIFT TO THE LEFT [None]
  - THROMBOCYTOPENIA [None]
  - WHITE BLOOD CELL COUNT INCREASED [None]
